FAERS Safety Report 14597415 (Version 1)
Quarter: 2018Q1

REPORT INFORMATION
  Report Type: Spontaneous
  Country: US (occurrence: US)
  Receive Date: 20180305
  Receipt Date: 20180305
  Transmission Date: 20180509
  Serious: No
  Sender: FDA-Public Use
  Company Number: US-AUROBINDO-AUR-APL-2017-30939

PATIENT
  Sex: Female

DRUGS (1)
  1. LEVETIRACETAM TABLETS 250 MG [Suspect]
     Active Substance: LEVETIRACETAM
     Indication: PRODUCT USED FOR UNKNOWN INDICATION
     Dosage: 750 MG, DAILY
     Route: 065

REACTIONS (8)
  - Insomnia [Unknown]
  - Contusion [Unknown]
  - Hypoaesthesia eye [Unknown]
  - Muscle twitching [Unknown]
  - Menstrual disorder [Unknown]
  - Tinnitus [Not Recovered/Not Resolved]
  - Epistaxis [Unknown]
  - Product substitution issue [Unknown]
